FAERS Safety Report 13097234 (Version 1)
Quarter: 2017Q1

REPORT INFORMATION
  Report Type: Spontaneous
  Country: US (occurrence: US)
  Receive Date: 20170106
  Receipt Date: 20170106
  Transmission Date: 20170428
  Serious: Yes (Hospitalization)
  Sender: FDA-Public Use
  Company Number: None

PATIENT
  Age: 70 Year
  Sex: Male
  Weight: 66.1 kg

DRUGS (2)
  1. ABIRATERONE [Suspect]
     Active Substance: ABIRATERONE
     Indication: PROSTATE CANCER
     Route: 048
     Dates: start: 20140520
  2. DASATINIB 100 MG LASTDOSE 11/DEC/^16 [Suspect]
     Active Substance: DASATINIB
     Indication: PROSTATE CANCER
     Route: 048
     Dates: start: 20140520

REACTIONS (6)
  - Muscular weakness [None]
  - Hypophagia [None]
  - Vomiting [None]
  - Nausea [None]
  - Pyrexia [None]
  - Pain in extremity [None]

NARRATIVE: CASE EVENT DATE: 20161216
